FAERS Safety Report 6547717-0 (Version None)
Quarter: 2010Q1

REPORT INFORMATION
  Report Type: 
  Country: None (occurrence: None)
  Receive Date: 20100123
  Receipt Date: 20100114
  Transmission Date: 20100710
  Serious: Yes (Hospitalization)
  Sender: FDA-Public Use
  Company Number: US-JNJFOC-20100107382

PATIENT
  Sex: Female
  Weight: 68.04 kg

DRUGS (8)
  1. FENTANYL [Suspect]
     Indication: PAIN
     Dosage: 100UG/HR PLUS 75UG/HR PATCHES
     Route: 062
  2. FENTANYL [Suspect]
     Route: 062
  3. FENTANYL [Suspect]
     Route: 062
  4. FENTANYL CITRATE [Suspect]
     Indication: PAIN
     Route: 062
  5. VALIUM [Suspect]
     Indication: PANIC ATTACK
     Route: 048
  6. VALIUM [Suspect]
     Indication: ANXIETY
     Route: 048
  7. SYNTHROID [Concomitant]
     Indication: HYPOTHYROIDISM
     Route: 048
  8. OXYCODONE [Concomitant]
     Indication: PAIN
     Route: 048

REACTIONS (15)
  - ANXIETY [None]
  - CYSTITIS [None]
  - EATING DISORDER [None]
  - HEPATIC FUNCTION ABNORMAL [None]
  - HERPES VIRUS INFECTION [None]
  - HYPERTENSION [None]
  - INSOMNIA [None]
  - NAUSEA [None]
  - NEPHROLITHIASIS [None]
  - NEURALGIA [None]
  - PANIC ATTACK [None]
  - RENAL IMPAIRMENT [None]
  - THERAPY CESSATION [None]
  - URTICARIA [None]
  - WEIGHT INCREASED [None]
